FAERS Safety Report 6433959-1 (Version None)
Quarter: 2009Q4

REPORT INFORMATION
  Report Type: 
  Country: None (occurrence: None)
  Receive Date: 20091106
  Receipt Date: 20091106
  Transmission Date: 20100525
  Serious: Yes (Other)
  Sender: FDA-Public Use
  Company Number: None

PATIENT
  Age: 36 Year
  Sex: Male
  Weight: 51.8 kg

DRUGS (1)
  1. DESFERAL MESYLATE ORAL POWDER [Suspect]
     Indication: HAEMOCHROMATOSIS
     Dosage: 4.0 GRAMS/100ML DRIP OVER 4-5 HRS IV NOT TO EXCEED 15MG/KG/HR 1800 HRS-2300 HRS
     Route: 042
     Dates: start: 20090909

REACTIONS (6)
  - FLUID OVERLOAD [None]
  - MEDICATION ERROR [None]
  - POLLAKIURIA [None]
  - PRODUCT COMPOUNDING QUALITY ISSUE [None]
  - RESPIRATORY DISTRESS [None]
  - WRONG TECHNIQUE IN DRUG USAGE PROCESS [None]
